FAERS Safety Report 25887440 (Version 1)
Quarter: 2025Q4

REPORT INFORMATION
  Report Type: Spontaneous
  Country: RU (occurrence: RU)
  Receive Date: 20251006
  Receipt Date: 20251006
  Transmission Date: 20260118
  Serious: Yes (Other)
  Sender: SANOFI AVENTIS
  Company Number: RU-SA-2025SA292613

PATIENT
  Age: 10 Year

DRUGS (2)
  1. BELUMOSUDIL MESYLATE [Suspect]
     Active Substance: BELUMOSUDIL MESYLATE
     Dosage: 100 MG, QD
  2. BELUMOSUDIL MESYLATE [Suspect]
     Active Substance: BELUMOSUDIL MESYLATE
     Dosage: 50 MG, QOD

REACTIONS (3)
  - Enterocolitis [Recovered/Resolved]
  - Pneumonia [Recovered/Resolved]
  - Off label use [Unknown]
